FAERS Safety Report 16072857 (Version 1)
Quarter: 2019Q1

REPORT INFORMATION
  Report Type: Report from Study
  Country: US (occurrence: US)
  Receive Date: 20190314
  Receipt Date: 20190314
  Transmission Date: 20190418
  Serious: Yes (Other)
  Sender: FDA-Public Use
  Company Number: US-JNJFOC-20190307291

PATIENT

DRUGS (12)
  1. GOLIMUMAB [Suspect]
     Active Substance: GOLIMUMAB
     Indication: PSORIATIC ARTHROPATHY
     Route: 058
     Dates: start: 20090925, end: 20150930
  2. USTEKINUMAB [Suspect]
     Active Substance: USTEKINUMAB
     Indication: PSORIATIC ARTHROPATHY
     Route: 058
     Dates: start: 20090925, end: 20150930
  3. ADALIMUMAB [Suspect]
     Active Substance: ADALIMUMAB
     Indication: PSORIASIS
     Route: 065
     Dates: start: 20090925, end: 20150930
  4. ETANERCEPT [Suspect]
     Active Substance: ETANERCEPT
     Indication: PSORIATIC ARTHROPATHY
     Route: 065
     Dates: start: 20090925, end: 20150930
  5. CERTOLIZUMAB [Suspect]
     Active Substance: CERTOLIZUMAB
     Indication: PSORIATIC ARTHROPATHY
     Route: 065
     Dates: start: 20090925, end: 20150930
  6. GOLIMUMAB [Suspect]
     Active Substance: GOLIMUMAB
     Indication: PSORIASIS
     Route: 058
     Dates: start: 20090925, end: 20150930
  7. INFLIXIMAB, RECOMBINANT [Suspect]
     Active Substance: INFLIXIMAB
     Indication: PSORIASIS
     Route: 042
     Dates: start: 20090925, end: 20150930
  8. ADALIMUMAB [Suspect]
     Active Substance: ADALIMUMAB
     Indication: PSORIATIC ARTHROPATHY
     Route: 065
     Dates: start: 20090925, end: 20150930
  9. ETANERCEPT [Suspect]
     Active Substance: ETANERCEPT
     Indication: PSORIASIS
     Route: 065
     Dates: start: 20090925, end: 20150930
  10. INFLIXIMAB, RECOMBINANT [Suspect]
     Active Substance: INFLIXIMAB
     Indication: PSORIATIC ARTHROPATHY
     Route: 042
     Dates: start: 20090925, end: 20150930
  11. CERTOLIZUMAB [Suspect]
     Active Substance: CERTOLIZUMAB
     Indication: PSORIASIS
     Route: 065
     Dates: start: 20090925, end: 20150930
  12. USTEKINUMAB [Suspect]
     Active Substance: USTEKINUMAB
     Indication: PSORIASIS
     Route: 058
     Dates: start: 20090925, end: 20150930

REACTIONS (4)
  - Coronary revascularisation [Unknown]
  - Myocardial infarction [Unknown]
  - Cerebrovascular accident [Unknown]
  - Atrial fibrillation [Unknown]
